FAERS Safety Report 8977611 (Version 1)
Quarter: 2012Q4

REPORT INFORMATION
  Report Type: 
  Country: US (occurrence: US)
  Receive Date: 20121220
  Receipt Date: 20121220
  Transmission Date: 20130627
  Serious: Yes (Other)
  Sender: FDA-Public Use
  Company Number: US-GLAXOSMITHKLINE-A1005957A

PATIENT
  Age: 54 Year
  Sex: Female
  Weight: 136.4 kg

DRUGS (4)
  1. WELLBUTRIN [Suspect]
     Indication: DEPRESSION
     Route: 065
     Dates: start: 201105, end: 20121101
  2. SAVELLA [Suspect]
     Indication: DEPRESSION
     Dosage: 50MG Per day
     Route: 065
     Dates: start: 201104
  3. CYMBALTA [Concomitant]
     Indication: DEPRESSION
     Dosage: 30MG Per day
     Route: 065
     Dates: start: 200802, end: 201105
  4. LISINOPRIL + HYDROCHLOROTHIAZIDE [Concomitant]
     Indication: HYPERTENSION

REACTIONS (5)
  - Hypoacusis [Not Recovered/Not Resolved]
  - Convulsion [Recovering/Resolving]
  - Tremor [Recovering/Resolving]
  - Muscular weakness [Unknown]
  - Muscular weakness [Unknown]
